FAERS Safety Report 20966408 (Version 2)
Quarter: 2022Q3

REPORT INFORMATION
  Report Type: Spontaneous
  Country: JP (occurrence: JP)
  Receive Date: 20220616
  Receipt Date: 20220708
  Transmission Date: 20221027
  Serious: Yes (Hospitalization, Other)
  Sender: FDA-Public Use
  Company Number: JP-NBI-S202200122BIPI

PATIENT
  Age: 73 Year
  Sex: Male

DRUGS (1)
  1. GILOTRIF [Suspect]
     Active Substance: AFATINIB
     Indication: Lung adenocarcinoma
     Route: 065

REACTIONS (3)
  - Pulmonary toxicity [Unknown]
  - Thrombotic microangiopathy [Recovering/Resolving]
  - Tubulointerstitial nephritis [Recovering/Resolving]
